FAERS Safety Report 16191896 (Version 2)
Quarter: 2019Q2

REPORT INFORMATION
  Report Type: Report from Study
  Country: US (occurrence: US)
  Receive Date: 20190412
  Receipt Date: 20190425
  Transmission Date: 20190711
  Serious: Yes (Hospitalization, Other)
  Sender: FDA-Public Use
  Company Number: US-BAYER-2019-029817

PATIENT
  Age: 68 Year
  Sex: Female

DRUGS (2)
  1. STIVARGA [Suspect]
     Active Substance: REGORAFENIB
     Indication: COLON CANCER
     Dosage: 120 MG, QD DAILY FOR 21 DAYS THEN 7 DAYS OFF
     Dates: start: 20190206, end: 20190422
  2. STIVARGA [Suspect]
     Active Substance: REGORAFENIB
     Indication: COLON CANCER
     Dosage: 120 MG DAILY
     Dates: start: 20190201, end: 201902

REACTIONS (12)
  - Constipation [Not Recovered/Not Resolved]
  - Decreased appetite [Not Recovered/Not Resolved]
  - Off label use [None]
  - Hypertension [Recovered/Resolved]
  - Abdominal pain upper [Not Recovered/Not Resolved]
  - Fatigue [None]
  - Dry skin [Not Recovered/Not Resolved]
  - Abdominal pain [Recovered/Resolved]
  - Somnolence [Not Recovered/Not Resolved]
  - Weight decreased [None]
  - Product dose omission [Recovered/Resolved]
  - Neuropathy peripheral [Not Recovered/Not Resolved]

NARRATIVE: CASE EVENT DATE: 20190205
